FAERS Safety Report 7219554-5 (Version None)
Quarter: 2011Q1

REPORT INFORMATION
  Report Type: 
  Country: None (occurrence: None)
  Receive Date: 20110111
  Receipt Date: 20110105
  Transmission Date: 20110831
  Serious: Yes (Hospitalization)
  Sender: FDA-Public Use
  Company Number: BR-MEDIMMUNE-MEDI-0011619

PATIENT
  Sex: Male
  Weight: 7.1 kg

DRUGS (6)
  1. FUROSEMIDE [Concomitant]
     Route: 048
     Dates: start: 20100315
  2. BROMOPRIDE [Concomitant]
     Route: 048
  3. CAPTOPRIL [Concomitant]
     Indication: PULMONARY HYPERTENSION
     Route: 048
     Dates: start: 20100315
  4. ANTHELMIN NAKAMURA [Concomitant]
     Route: 048
  5. DOMPERIDONE [Concomitant]
     Route: 048
  6. SYNAGIS [Suspect]
     Indication: CARDIAC DISORDER
     Route: 030
     Dates: start: 20100501, end: 20100601

REACTIONS (1)
  - VENOUS STENOSIS [None]
